FAERS Safety Report 11219962 (Version 1)
Quarter: 2015Q2

REPORT INFORMATION
  Report Type: Spontaneous
  Country: US (occurrence: None)
  Receive Date: 20150624
  Receipt Date: 20150624
  Transmission Date: 20150821
  Serious: Yes (Hospitalization)
  Sender: FDA-Public Use
  Company Number: US-002074

PATIENT
  Sex: Male

DRUGS (1)
  1. GATTEX [Suspect]
     Active Substance: TEDUGLUTIDE\WATER
     Indication: SHORT-BOWEL SYNDROME
     Route: 058
     Dates: start: 20140409, end: 201410

REACTIONS (6)
  - Staphylococcal infection [None]
  - Weight decreased [None]
  - Cardiac operation [None]
  - Cerebrovascular accident [None]
  - Diarrhoea [None]
  - Pneumonia [None]

NARRATIVE: CASE EVENT DATE: 2014
